FAERS Safety Report 9442172 (Version 1)
Quarter: 2013Q3

REPORT INFORMATION
  Report Type: Spontaneous
  Country: US (occurrence: US)
  Receive Date: 20130806
  Receipt Date: 20130806
  Transmission Date: 20140515
  Serious: Yes (Other)
  Sender: FDA-Public Use
  Company Number: US-AMGEN-USASP2013044719

PATIENT
  Age: 71 Year
  Sex: Female

DRUGS (2)
  1. SENSIPAR [Suspect]
     Indication: HYPERCALCAEMIA
     Dosage: 30 MG, QD
     Route: 065
     Dates: start: 2012
  2. LEVOTHROID [Concomitant]

REACTIONS (11)
  - Dizziness [Recovering/Resolving]
  - Hypokinesia [Unknown]
  - Hypotonia [Unknown]
  - Activities of daily living impaired [Not Recovered/Not Resolved]
  - Hypoaesthesia [Not Recovered/Not Resolved]
  - Pain in extremity [Not Recovered/Not Resolved]
  - Cough [Not Recovered/Not Resolved]
  - Pulmonary congestion [Not Recovered/Not Resolved]
  - Asthenia [Not Recovered/Not Resolved]
  - Body temperature increased [Unknown]
  - General physical health deterioration [Not Recovered/Not Resolved]
